FAERS Safety Report 7206064-4 (Version None)
Quarter: 2010Q4

REPORT INFORMATION
  Report Type: 
  Country: None (occurrence: None)
  Receive Date: 20101229
  Receipt Date: 20101229
  Transmission Date: 20110411
  Serious: Yes (Other)
  Sender: FDA-Public Use
  Company Number: None

PATIENT
  Sex: Male

DRUGS (1)
  1. OCTREOTIDE ACETATE [Suspect]
     Dosage: 100 MG IV BOLUS
     Route: 040

REACTIONS (2)
  - ARRHYTHMIA [None]
  - CHEST PAIN [None]
